FAERS Safety Report 4606588-X (Version None)
Quarter: 2005Q2

REPORT INFORMATION
  Report Type: 
  Country: None (occurrence: None)
  Receive Date: 20050223
  Receipt Date: 20040623
  Transmission Date: 20051028
  Serious: Yes (Disabling)
  Sender: FDA-Public Use
  Company Number: WAES 0406USA02207

PATIENT
  Age: 63 Year
  Sex: Male

DRUGS (9)
  1. ZOCOR [Suspect]
     Indication: BLOOD CHOLESTEROL INCREASED
     Dosage: 10 MG/DAILY/PO
     Route: 048
     Dates: start: 20030601, end: 20031001
  2. COREG [Concomitant]
  3. FIORICET [Concomitant]
  4. KLOR-CON [Concomitant]
  5. FOSINOPRIL SODIUM [Concomitant]
  6. FUROSEMIDE [Concomitant]
  7. HYDRALAZINE [Concomitant]
  8. NITROGLYCERIN [Concomitant]
  9. SOTALOL HCL [Concomitant]

REACTIONS (1)
  - MYALGIA [None]
